FAERS Safety Report 14668950 (Version 1)
Quarter: 2018Q1

REPORT INFORMATION
  Report Type: Spontaneous
  Country: US (occurrence: US)
  Receive Date: 20180322
  Receipt Date: 20180322
  Transmission Date: 20180509
  Serious: Yes (Hospitalization)
  Sender: FDA-Public Use
  Company Number: US-JNJFOC-20180322862

PATIENT
  Age: 36 Year
  Sex: Female

DRUGS (2)
  1. CONCERTA [Suspect]
     Active Substance: METHYLPHENIDATE HYDROCHLORIDE
     Indication: ATTENTION DEFICIT/HYPERACTIVITY DISORDER
     Dosage: MORE THAN 300 MG
     Route: 048
  2. CONCERTA [Suspect]
     Active Substance: METHYLPHENIDATE HYDROCHLORIDE
     Indication: ATTENTION DEFICIT/HYPERACTIVITY DISORDER
     Dosage: MORE THAN 200 MG; FOR PAST 5-6 YEARS
     Route: 048

REACTIONS (4)
  - Incorrect dose administered [Unknown]
  - Psychotic disorder [Unknown]
  - Off label use [Unknown]
  - Attention deficit/hyperactivity disorder [Unknown]
